FAERS Safety Report 20992292 (Version 1)
Quarter: 2022Q2

REPORT INFORMATION
  Report Type: Spontaneous
  Country: US (occurrence: None)
  Receive Date: 20220622
  Receipt Date: 20220622
  Transmission Date: 20220721
  Serious: Yes (Other)
  Sender: FDA-Public Use
  Company Number: US-ROCHE-3121322

PATIENT
  Sex: Male

DRUGS (1)
  1. GAVRETO [Suspect]
     Active Substance: PRALSETINIB
     Indication: Medullary thyroid cancer
     Route: 048

REACTIONS (2)
  - Hypertransaminasaemia [Recovered/Resolved]
  - Ascites [Not Recovered/Not Resolved]
